FAERS Safety Report 23730167 (Version 5)
Quarter: 2024Q3

REPORT INFORMATION
  Report Type: Spontaneous
  Country: JP (occurrence: JP)
  Receive Date: 20240411
  Receipt Date: 20240726
  Transmission Date: 20241017
  Serious: Yes (Hospitalization, Other)
  Sender: NOVARTIS
  Company Number: JP-002147023-NVSJ2024JP004283

PATIENT
  Age: 50 Year
  Sex: Female

DRUGS (3)
  1. KESIMPTA [Suspect]
     Active Substance: OFATUMUMAB
     Indication: Relapsing-remitting multiple sclerosis
     Dosage: 20 MG
     Route: 058
     Dates: start: 20240322
  2. KESIMPTA [Suspect]
     Active Substance: OFATUMUMAB
     Dosage: 20 MG
     Route: 058
     Dates: start: 20240329, end: 20240329
  3. GILENYA [Suspect]
     Active Substance: FINGOLIMOD HYDROCHLORIDE
     Indication: Multiple sclerosis
     Dosage: UNK, QW4 (ABOUT 10 YEARS)
     Route: 048
     Dates: start: 2012, end: 20240321

REACTIONS (13)
  - Multiple sclerosis relapse [Recovering/Resolving]
  - Monoplegia [Recovering/Resolving]
  - Bell^s palsy [Recovering/Resolving]
  - Dyslalia [Recovering/Resolving]
  - Dysphagia [Recovering/Resolving]
  - Feeling abnormal [Recovering/Resolving]
  - Psychiatric symptom [Recovering/Resolving]
  - Multiple sclerosis [Recovering/Resolving]
  - Hypoaesthesia [Recovering/Resolving]
  - Lymphocyte count decreased [Unknown]
  - Rebound effect [Recovering/Resolving]
  - Mental disorder [Unknown]
  - Prescribed underdose [Unknown]

NARRATIVE: CASE EVENT DATE: 20240310
